FAERS Safety Report 16053717 (Version 1)
Quarter: 2019Q1

REPORT INFORMATION
  Report Type: Spontaneous
  Country: US (occurrence: US)
  Receive Date: 20190308
  Receipt Date: 20190308
  Transmission Date: 20190418
  Serious: Yes (Hospitalization)
  Sender: FDA-Public Use
  Company Number: US-ASTRAZENECA-2019SE35868

PATIENT
  Sex: Female

DRUGS (12)
  1. AMLODIPINE [Concomitant]
     Active Substance: AMLODIPINE BESYLATE
  2. CRESTOR [Concomitant]
     Active Substance: ROSUVASTATIN CALCIUM
  3. METFORMIN [Concomitant]
     Active Substance: METFORMIN HYDROCHLORIDE
  4. LISINOPRIL. [Concomitant]
     Active Substance: LISINOPRIL
  5. GLIPIZIDE. [Concomitant]
     Active Substance: GLIPIZIDE
  6. FLUTICASONE. [Concomitant]
     Active Substance: FLUTICASONE
  7. ATENOLOL. [Concomitant]
     Active Substance: ATENOLOL
  8. KOMBIGLYZE XR [Suspect]
     Active Substance: METFORMIN HYDROCHLORIDE\SAXAGLIPTIN HYDROCHLORIDE
     Route: 048
     Dates: start: 20111228, end: 20130109
  9. LASIX [Concomitant]
     Active Substance: FUROSEMIDE
  10. ONGLYZA [Suspect]
     Active Substance: SAXAGLIPTIN HYDROCHLORIDE
     Route: 048
     Dates: start: 20130205, end: 201807
  11. COREG [Concomitant]
     Active Substance: CARVEDILOL
  12. AMOXICILLIN. [Concomitant]
     Active Substance: AMOXICILLIN

REACTIONS (1)
  - Cardiac failure congestive [Unknown]
